FAERS Safety Report 22173131 (Version 1)
Quarter: 2023Q2

REPORT INFORMATION
  Report Type: Spontaneous
  Country: US (occurrence: None)
  Receive Date: 20230404
  Receipt Date: 20230404
  Transmission Date: 20230721
  Serious: No
  Sender: FDA-Public Use
  Company Number: None

PATIENT
  Age: 79 Year
  Sex: Female
  Weight: 72.57 kg

DRUGS (10)
  1. CAPECITABINE [Suspect]
     Active Substance: CAPECITABINE
     Indication: Breast cancer female
     Dosage: FREQUENCY : TWICE A DAY;?
     Route: 048
     Dates: end: 202302
  2. AMLDOIPINE [Concomitant]
  3. DEXAMETHASONE [Concomitant]
     Active Substance: DEXAMETHASONE
  4. ELIQUIS [Concomitant]
     Active Substance: APIXABAN
  5. HYDROCHLOROTHIAZIDE [Concomitant]
     Active Substance: HYDROCHLOROTHIAZIDE
  6. LOPERAMIDE [Concomitant]
     Active Substance: LOPERAMIDE
  7. METOPROLOL [Concomitant]
  8. POTASSIUM [Concomitant]
  9. UREA [Concomitant]
     Active Substance: UREA
  10. VALSARTAN [Concomitant]

REACTIONS (1)
  - Clostridium difficile infection [None]
